FAERS Safety Report 24710292 (Version 1)
Quarter: 2024Q4

REPORT INFORMATION
  Report Type: Spontaneous
  Country: CN (occurrence: CN)
  Receive Date: 20241209
  Receipt Date: 20241209
  Transmission Date: 20250115
  Serious: Yes (Other)
  Sender: ROCHE
  Company Number: CN-ROCHE-10000150912

PATIENT
  Age: 81 Year
  Sex: Female
  Weight: 67.0 kg

DRUGS (2)
  1. ALTEPLASE [Suspect]
     Active Substance: ALTEPLASE
     Indication: Cerebral infarction
     Route: 042
     Dates: start: 20241006, end: 20241006
  2. ALTEPLASE [Suspect]
     Active Substance: ALTEPLASE
     Route: 042
     Dates: start: 20241006, end: 20241006

REACTIONS (2)
  - Subcutaneous haematoma [Not Recovered/Not Resolved]
  - Respiratory arrest [Unknown]

NARRATIVE: CASE EVENT DATE: 20241006
